FAERS Safety Report 14303915 (Version 1)
Quarter: 2017Q4

REPORT INFORMATION
  Report Type: Spontaneous
  Country: JP (occurrence: JP)
  Receive Date: 20171219
  Receipt Date: 20171219
  Transmission Date: 20180321
  Serious: Yes (Other)
  Sender: FDA-Public Use
  Company Number: JP-OTSUKA-JP-2012-16973

PATIENT
  Age: 61 Year
  Sex: Male
  Weight: 62 kg

DRUGS (12)
  1. ABILIFY [Suspect]
     Active Substance: ARIPIPRAZOLE
     Dosage: 18 MG, QD
     Route: 048
     Dates: start: 20121106, end: 20121120
  2. FLUNITRAZEPAM [Suspect]
     Active Substance: FLUNITRAZEPAM
     Dosage: TABS
     Dates: start: 20121030, end: 20121126
  3. WINTERMIN [Concomitant]
     Active Substance: PROMAZINE
     Indication: RESTLESSNESS
     Dosage: 25 MG, PRN
     Route: 048
     Dates: start: 20121103, end: 20121103
  4. ABILIFY [Suspect]
     Active Substance: ARIPIPRAZOLE
     Indication: SCHIZOPHRENIA
     Dosage: 12 MG, QD
     Route: 048
     Dates: start: 20121030, end: 20121105
  5. WINTERMIN [Concomitant]
     Active Substance: PROMAZINE
     Dosage: 25 MG, PRN
     Route: 048
     Dates: start: 20121126, end: 20121126
  6. FLUNITRAZEPAM [Concomitant]
     Active Substance: FLUNITRAZEPAM
     Indication: INSOMNIA
     Dosage: 2 MG, QD
     Route: 048
     Dates: start: 20121030, end: 20121126
  7. BENZALIN [Concomitant]
     Active Substance: NITRAZEPAM
     Indication: INSOMNIA
     Dosage: 20 MG, QD
     Route: 048
     Dates: start: 20121128, end: 20121129
  8. GOODMIN [Suspect]
     Active Substance: BROTIZOLAM
     Indication: INSOMNIA
     Dosage: 0.25 MG, PRN
     Route: 048
     Dates: start: 20121030, end: 20121202
  9. CHLORPROMAZINE HCL [Suspect]
     Active Substance: CHLORPROMAZINE HYDROCHLORIDE
     Indication: RESTLESSNESS
     Dosage: TABS, 03NOV2012
     Dates: start: 20121103, end: 20121126
  10. HIRNAMIN [Concomitant]
     Active Substance: PHENOTHIAZINE
     Indication: RESTLESSNESS
     Dosage: 25 MG, PRN
     Route: 048
     Dates: start: 20121103, end: 20121103
  11. LEVOMEPROMAZINE [Suspect]
     Active Substance: LEVOMEPROMAZINE
     Indication: RESTLESSNESS
     Dosage: TAB
     Dates: start: 20121103, end: 20121103
  12. HIRNAMIN [Concomitant]
     Active Substance: PHENOTHIAZINE
     Dosage: 25 MG, PRN
     Route: 048
     Dates: start: 20121126, end: 20121126

REACTIONS (4)
  - Renal impairment [Recovering/Resolving]
  - Hepatic function abnormal [Recovered/Resolved]
  - Blood creatine phosphokinase increased [Recovered/Resolved]
  - Blood lactate dehydrogenase increased [Recovered/Resolved]

NARRATIVE: CASE EVENT DATE: 20121120
